FAERS Safety Report 7497650-5 (Version None)
Quarter: 2011Q2

REPORT INFORMATION
  Report Type: 
  Country: None (occurrence: None)
  Receive Date: 20110523
  Receipt Date: 20110518
  Transmission Date: 20111010
  Serious: Yes (Other)
  Sender: FDA-Public Use
  Company Number: GXKR2011DE01748

PATIENT
  Age: 64 Year
  Sex: Female

DRUGS (4)
  1. ALENDRONATE SODIUM [Suspect]
     Dosage: UNK UKN, UNK
     Route: 048
     Dates: start: 20030101, end: 20030201
  2. CORTISONE ACETATE [Concomitant]
     Route: 065
  3. CHEMOTHERAPEUTICS NOS [Concomitant]
     Route: 065
  4. ZOLEDRONIC ACID [Suspect]
     Dosage: UNK UKN, UNK
     Route: 048
     Dates: start: 20030201, end: 20050201

REACTIONS (3)
  - OSTEONECROSIS OF JAW [None]
  - OSTEOMYELITIS [None]
  - PATHOLOGICAL FRACTURE [None]
